FAERS Safety Report 23026271 (Version 2)
Quarter: 2023Q4

REPORT INFORMATION
  Report Type: Spontaneous
  Country: MX (occurrence: MX)
  Receive Date: 20231004
  Receipt Date: 20231009
  Transmission Date: 20240110
  Serious: Yes (Death, Life-Threatening, Hospitalization, Other)
  Sender: FDA-Public Use
  Company Number: MX-MLMSERVICE-20230918-4545353-1

PATIENT
  Age: 8 Year
  Sex: Male

DRUGS (6)
  1. HYDROCORTISONE [Suspect]
     Active Substance: HYDROCORTISONE
     Indication: Acute lymphocytic leukaemia
     Dosage: UNK
  2. METHOTREXATE [Suspect]
     Active Substance: METHOTREXATE
     Indication: Acute lymphocytic leukaemia
     Dosage: UNK
  3. MERCAPTOPURINE [Suspect]
     Active Substance: MERCAPTOPURINE
     Indication: Acute lymphocytic leukaemia
     Dosage: UNK
  4. MITOXANTRONE [Suspect]
     Active Substance: MITOXANTRONE HYDROCHLORIDE
     Indication: Acute lymphocytic leukaemia
     Dosage: UNK
  5. CYTARABINE [Suspect]
     Active Substance: CYTARABINE
     Indication: Acute lymphocytic leukaemia
     Dosage: UNK
  6. LEUCOVORIN [Suspect]
     Active Substance: LEUCOVORIN\LEUCOVORIN CALCIUM
     Indication: Acute lymphocytic leukaemia
     Dosage: UNK

REACTIONS (14)
  - Respiratory failure [Fatal]
  - Systemic inflammatory response syndrome [Fatal]
  - Disseminated mucormycosis [Fatal]
  - Neutropenic colitis [Unknown]
  - Dystrophic calcification [Unknown]
  - Intestinal obstruction [Unknown]
  - Embolism [Unknown]
  - Pyrexia [Unknown]
  - Abdominal pain [Unknown]
  - Neutropenia [Unknown]
  - Necrosis ischaemic [Unknown]
  - Embolism [Unknown]
  - Steatohepatitis [Unknown]
  - Palmar-plantar erythrodysaesthesia syndrome [Unknown]
